FAERS Safety Report 14586342 (Version 2)
Quarter: 2018Q1

REPORT INFORMATION
  Report Type: Spontaneous
  Country: US (occurrence: US)
  Receive Date: 20180301
  Receipt Date: 20180306
  Transmission Date: 20180509
  Serious: No
  Sender: FDA-Public Use
  Company Number: US-CELGENEUS-USA-20180209733

PATIENT
  Age: 63 Year
  Sex: Female

DRUGS (6)
  1. METOPROLOL. [Concomitant]
     Active Substance: METOPROLOL
     Indication: HYPERTENSION
     Route: 065
  2. DULOXETINE. [Concomitant]
     Active Substance: DULOXETINE
     Indication: DEPRESSION
     Route: 065
  3. VITAMINS [Concomitant]
     Active Substance: VITAMINS
     Indication: PRODUCT USED FOR UNKNOWN INDICATION
     Route: 065
  4. OTEZLA [Suspect]
     Active Substance: APREMILAST
     Indication: PSORIASIS
     Dosage: 60 MILLIGRAM
     Route: 048
     Dates: start: 20180226
  5. SYNTHROID [Concomitant]
     Active Substance: LEVOTHYROXINE SODIUM
     Indication: HYPOTHYROIDISM
     Route: 065
  6. OTEZLA [Suspect]
     Active Substance: APREMILAST
     Indication: PSORIATIC ARTHROPATHY
     Dosage: 40 MILLIGRAM
     Route: 048
     Dates: start: 20170223

REACTIONS (7)
  - Heart rate increased [Recovered/Resolved]
  - Blood pressure increased [Recovered/Resolved]
  - Pain in jaw [Recovered/Resolved]
  - Anxiety [Recovered/Resolved]
  - Facial pain [Recovered/Resolved]
  - Pruritus generalised [Unknown]
  - Headache [Unknown]

NARRATIVE: CASE EVENT DATE: 20180226
